FAERS Safety Report 5151465-1 (Version None)
Quarter: 2006Q4

REPORT INFORMATION
  Report Type: 
  Country: None (occurrence: None)
  Receive Date: 20061114
  Receipt Date: 20061114
  Transmission Date: 20070319
  Serious: No
  Sender: FDA-Public Use
  Company Number: None

PATIENT
  Age: 52 Year
  Sex: Female

DRUGS (1)
  1. ALBUTEROL [Suspect]
     Dosage: USE 1 VIAL 4 TIMES DAILY VIA NEBULIZER
     Dates: start: 20051103, end: 20060110

REACTIONS (2)
  - PHARMACEUTICAL PRODUCT COMPLAINT [None]
  - TREMOR [None]
